FAERS Safety Report 9418876 (Version 1)
Quarter: 2013Q3

REPORT INFORMATION
  Report Type: Report from Study
  Country: CA (occurrence: CA)
  Receive Date: 20130725
  Receipt Date: 20130725
  Transmission Date: 20140515
  Serious: Yes (Hospitalization)
  Sender: FDA-Public Use
  Company Number: CA-JNJFOC-20130715252

PATIENT
  Age: 27 Year
  Sex: Female
  Weight: 95.6 kg

DRUGS (4)
  1. REMICADE [Suspect]
     Indication: COLITIS ULCERATIVE
     Route: 042
     Dates: start: 20130211
  2. IMURAN [Concomitant]
     Route: 065
  3. DEPO-PROVERA [Concomitant]
     Route: 065
  4. CELEBREX [Concomitant]
     Dosage: PRN
     Route: 065

REACTIONS (3)
  - Rheumatoid arthritis [Unknown]
  - Colitis ulcerative [Unknown]
  - Urinary tract infection [Unknown]
